FAERS Safety Report 11997739 (Version 1)
Quarter: 2016Q1

REPORT INFORMATION
  Report Type: Spontaneous
  Country: IT (occurrence: None)
  Receive Date: 20160202
  Receipt Date: 20160202
  Transmission Date: 20160526
  Serious: Yes (Other)
  Sender: FDA-Public Use
  Company Number: IT-ALSI-201600021

PATIENT
  Sex: Female

DRUGS (1)
  1. NITROUS OXIDE. [Suspect]
     Active Substance: NITROUS OXIDE
     Indication: SEDATIVE THERAPY
     Dosage: RESPIRATORY
     Route: 055
     Dates: start: 20101104, end: 20101104

REACTIONS (4)
  - Monoplegia [None]
  - Gene mutation [None]
  - Pyramidal tract syndrome [None]
  - Hypoaesthesia [None]
